FAERS Safety Report 8213146-7 (Version None)
Quarter: 2012Q1

REPORT INFORMATION
  Report Type: 
  Country: None (occurrence: None)
  Receive Date: 20120315
  Receipt Date: 20120313
  Transmission Date: 20120608
  Serious: Yes (Other)
  Sender: FDA-Public Use
  Company Number: US-PFIZER INC-2012066642

PATIENT
  Sex: Female
  Weight: 87.075 kg

DRUGS (7)
  1. ZOLOFT [Suspect]
     Indication: DEPRESSION
     Dosage: 100 MG, 1X/DAY
     Route: 048
  2. HYDROCHLOROTHIAZIDE [Concomitant]
     Dosage: UNK, 1X/DAY
  3. DETROL LA [Suspect]
     Indication: HYPERTONIC BLADDER
     Dosage: 4 MG, 1X/DAY
     Route: 048
  4. COUMADIN [Concomitant]
     Dosage: 2 MG, 1X/DAY
  5. ZOLOFT [Suspect]
     Indication: ANXIETY
     Dosage: UNK
     Route: 048
  6. DIGOXIN [Concomitant]
     Dosage: UNK
  7. METOPROLOL [Concomitant]
     Dosage: UNK, 1X/DAY

REACTIONS (8)
  - DRUG INEFFECTIVE [None]
  - NASAL DISCOMFORT [None]
  - MEMORY IMPAIRMENT [None]
  - HYPERTONIC BLADDER [None]
  - ATRIAL FIBRILLATION [None]
  - TREMOR [None]
  - DEPRESSION [None]
  - NASAL CONGESTION [None]
